FAERS Safety Report 8043583-5 (Version None)
Quarter: 2012Q1

REPORT INFORMATION
  Report Type: 
  Country: None (occurrence: None)
  Receive Date: 20120112
  Receipt Date: 20120109
  Transmission Date: 20120608
  Serious: Yes (Death, Other)
  Sender: FDA-Public Use
  Company Number: CN-ROCHE-1029283

PATIENT

DRUGS (4)
  1. LAMIVUDINE [Concomitant]
     Indication: ANTIVIRAL PROPHYLAXIS
  2. MYCOPHENOLATE MOFETIL (CELLCEPT) [Suspect]
     Indication: PROPHYLAXIS AGAINST TRANSPLANT REJECTION
  3. HEPATITIS B IMMUNE GLOBULIN (HUMAN) [Concomitant]
     Indication: ANTIVIRAL PROPHYLAXIS
  4. HEPATITIS B IMMUNE GLOBULIN (HUMAN) [Concomitant]

REACTIONS (3)
  - HEPATITIS B [None]
  - HEPATIC FAILURE [None]
  - HEPATITIS CHOLESTATIC [None]
